FAERS Safety Report 5261164-3 (Version None)
Quarter: 2007Q1

REPORT INFORMATION
  Report Type: 
  Country: None (occurrence: None)
  Receive Date: 20070309
  Receipt Date: 20070228
  Transmission Date: 20070707
  Serious: No
  Sender: FDA-Public Use
  Company Number: DE-PFIZER INC-2007003964

PATIENT
  Sex: Male
  Weight: 90 kg

DRUGS (5)
  1. CAMPTOSAR [Suspect]
     Indication: COLORECTAL CANCER
     Dosage: DAILY DOSE:130MG
     Route: 042
  2. CAMPTOSAR [Suspect]
     Indication: GASTRIC CANCER
  3. CONTRAST MEDIA [Suspect]
     Dates: start: 20070101, end: 20070101
  4. FLUOROURACIL [Suspect]
     Indication: GASTRIC CANCER
     Dosage: DAILY DOSE:3200MG
     Route: 042
     Dates: start: 20061213
  5. FOLINIC ACID [Suspect]
     Indication: GASTRIC CANCER
     Dosage: DAILY DOSE:800MG
     Route: 042

REACTIONS (1)
  - BLOOD CREATININE INCREASED [None]
